FAERS Safety Report 5009833-4 (Version None)
Quarter: 2006Q2

REPORT INFORMATION
  Report Type: 
  Country: None (occurrence: None)
  Receive Date: 20060522
  Receipt Date: 20060511
  Transmission Date: 20061013
  Serious: Yes (Other)
  Sender: FDA-Public Use
  Company Number: 2006-DE-02449GD

PATIENT

DRUGS (1)
  1. MORPHINE [Suspect]
     Indication: PROCEDURAL PAIN
     Dosage: 0.1 MG/KG, MAXIMUM 10 MG (15 MIN BEFORE PROCEDURE) (NR), IV
     Route: 042

REACTIONS (1)
  - OXYGEN SATURATION DECREASED [None]
